FAERS Safety Report 4283149-6 (Version None)
Quarter: 2004Q1

REPORT INFORMATION
  Report Type: 
  Country: None (occurrence: None)
  Receive Date: 20040129
  Receipt Date: 20040116
  Transmission Date: 20041129
  Serious: Yes (Other)
  Sender: FDA-Public Use
  Company Number: 2004003749

PATIENT
  Sex: Male

DRUGS (4)
  1. CARDURA XL [Suspect]
     Indication: BENIGN PROSTATIC HYPERPLASIA
     Dosage: ORAL
     Route: 048
  2. GREPAFLOXACIN HYDROCHLORIDE (GREPAFLOXACIN HYDROCHLORIDE) [Suspect]
     Indication: HYPERTENSION
     Dosage: ORAL
     Route: 048
  3. ANTIHYPERTENSIVES [Suspect]
     Indication: HYPERTENSION
     Dosage: ORAL
     Route: 048
  4. ALL OTHER THERAPEUTIC PRODUCTS [Concomitant]

REACTIONS (5)
  - DIZZINESS POSTURAL [None]
  - FALL [None]
  - LOSS OF CONSCIOUSNESS [None]
  - SYNCOPE [None]
  - TREATMENT NONCOMPLIANCE [None]
